FAERS Safety Report 5694291-7 (Version None)
Quarter: 2008Q2

REPORT INFORMATION
  Report Type: 
  Country: None (occurrence: None)
  Receive Date: 20080404
  Receipt Date: 20080324
  Transmission Date: 20081010
  Serious: Yes (Hospitalization)
  Sender: FDA-Public Use
  Company Number: ES-JNJFOC-20080305578

PATIENT
  Age: 59 Year
  Sex: Male

DRUGS (3)
  1. TAVANIC [Suspect]
     Indication: BRONCHITIS
     Route: 048
  2. DAFALGAN [Concomitant]
     Route: 048
  3. FLUMIL [Concomitant]
     Route: 048

REACTIONS (1)
  - DIARRHOEA HAEMORRHAGIC [None]
